FAERS Safety Report 17069494 (Version 2)
Quarter: 2020Q1

REPORT INFORMATION
  Report Type: Spontaneous
  Country: US (occurrence: US)
  Receive Date: 20191125
  Receipt Date: 20200220
  Transmission Date: 20200409
  Serious: Yes (Other)
  Sender: FDA-Public Use
  Company Number: US-ELI_LILLY_AND_COMPANY-US201911000075

PATIENT
  Age: 69 Year
  Sex: Female

DRUGS (3)
  1. HUMULIN R [Suspect]
     Active Substance: INSULIN HUMAN
     Indication: TYPE 2 DIABETES MELLITUS
     Dosage: 20-25 U, BID
     Route: 058
  2. HUMALOG MIX75/25 [Suspect]
     Active Substance: INSULIN LISPRO
     Indication: TYPE 2 DIABETES MELLITUS
     Dosage: 20-25 U, BID
     Route: 058
  3. HUMALOG MIX75/25 [Suspect]
     Active Substance: INSULIN LISPRO
     Dosage: 20-25 U, BID
     Route: 058

REACTIONS (9)
  - Road traffic accident [Recovered/Resolved]
  - Stress [Recovered/Resolved]
  - Depression [Recovered/Resolved]
  - Neck injury [Recovered/Resolved]
  - Spinal disorder [Recovered/Resolved]
  - Blood glucose increased [Recovered/Resolved]
  - Feeding disorder [Unknown]
  - Blood glucose decreased [Recovered/Resolved]
  - Tremor [Recovered/Resolved]
